FAERS Safety Report 5519563-8 (Version None)
Quarter: 2007Q4

REPORT INFORMATION
  Report Type: 
  Country: None (occurrence: None)
  Receive Date: 20071116
  Receipt Date: 20071106
  Transmission Date: 20080405
  Serious: Yes (Death, Hospitalization, Other)
  Sender: FDA-Public Use
  Company Number: US-PURDUE-USA_2007_0030082

PATIENT
  Age: 82 Year
  Sex: Female

DRUGS (1)
  1. OXYCONTIN [Suspect]
     Indication: RHEUMATOID ARTHRITIS
     Dosage: UNK MG, UNK
     Route: 048
     Dates: start: 20040401

REACTIONS (7)
  - ANOREXIA [None]
  - BALANCE DISORDER [None]
  - DEATH [None]
  - FALL [None]
  - IRRITABILITY [None]
  - SOCIAL AVOIDANT BEHAVIOUR [None]
  - WITHDRAWAL SYNDROME [None]
